FAERS Safety Report 22028748 (Version 1)
Quarter: 2023Q1

REPORT INFORMATION
  Report Type: Spontaneous
  Country: JP (occurrence: JP)
  Receive Date: 20230223
  Receipt Date: 20230223
  Transmission Date: 20230417
  Serious: No
  Sender: FDA-Public Use
  Company Number: JP-009507513-2302JPN007246

PATIENT

DRUGS (3)
  1. MOLNUPIRAVIR [Suspect]
     Active Substance: MOLNUPIRAVIR
     Indication: COVID-19 treatment
     Dosage: MOLNUPIRAVIR 800 MG (FOUR 200 MG CAPSULES) WAS ADMINISTERED ORALLY TWICE DAILY FOR 5 DAYS
     Route: 048
     Dates: start: 2022, end: 2022
  2. REMDESIVIR [Concomitant]
     Active Substance: REMDESIVIR
     Indication: COVID-19 treatment
     Dosage: 200 MILLIGRAM INFUSED IV OVER 0.5 H ONCE AT THE FIRST VISIT
     Route: 042
     Dates: start: 2022, end: 2022
  3. REMDESIVIR [Concomitant]
     Active Substance: REMDESIVIR
     Dosage: INTRAVENOUS ADMINISTRATION OF 100MG ONCE DAILY FOR 4 DAYS FROM DAY 2
     Route: 042
     Dates: start: 2022, end: 2022

REACTIONS (1)
  - Product use in unapproved indication [Unknown]

NARRATIVE: CASE EVENT DATE: 20220101
